FAERS Safety Report 11037445 (Version 1)
Quarter: 2015Q2

REPORT INFORMATION
  Report Type: Report from Study
  Country: CN (occurrence: CN)
  Receive Date: 20150416
  Receipt Date: 20150416
  Transmission Date: 20150821
  Serious: Yes (Life-Threatening)
  Sender: FDA-Public Use
  Company Number: CN-ASTRAZENECA-2015SE10008

PATIENT
  Age: 23065 Day
  Sex: Male

DRUGS (3)
  1. AZD2281 [Suspect]
     Active Substance: OLAPARIB
     Indication: GASTRIC CANCER
     Route: 048
     Dates: start: 20150115, end: 20150129
  2. PACLITAXEL. [Suspect]
     Active Substance: PACLITAXEL
     Indication: GASTRIC CANCER
     Dosage: 80 MG/M2 IV INFUSION ON DAYS 1, 8 AND 15 OF A 28 DAY CYCLE
     Route: 042
     Dates: start: 20150122, end: 20150122
  3. PACLITAXEL. [Suspect]
     Active Substance: PACLITAXEL
     Indication: GASTRIC CANCER
     Dosage: 80 MG/M2 IV INFUSION ON DAYS 1, 8 AND 15 OF A 28 DAY CYCLE
     Route: 042
     Dates: start: 20150115, end: 20150115

REACTIONS (1)
  - Bone marrow failure [Recovering/Resolving]

NARRATIVE: CASE EVENT DATE: 20150129
